FAERS Safety Report 15482997 (Version 1)
Quarter: 2018Q4

REPORT INFORMATION
  Report Type: Spontaneous
  Country: US (occurrence: US)
  Receive Date: 20181010
  Receipt Date: 20181010
  Transmission Date: 20190205
  Serious: No
  Sender: FDA-Public Use
  Company Number: US-009507513-1809USA004436

PATIENT
  Sex: Female

DRUGS (2)
  1. PUREGON PEN [Suspect]
     Active Substance: FOLLITROPIN
  2. FOLLISTIM [Suspect]
     Active Substance: FOLLITROPIN
     Dosage: 300 IU/DAILY
     Route: 058

REACTIONS (2)
  - Product contamination with body fluid [Unknown]
  - No adverse event [Unknown]

NARRATIVE: CASE EVENT DATE: 20180901
